FAERS Safety Report 4389824-0 (Version None)
Quarter: 2004Q2

REPORT INFORMATION
  Report Type: 
  Country: None (occurrence: None)
  Receive Date: 20040630
  Receipt Date: 20040618
  Transmission Date: 20050107
  Serious: Yes (Death, Life-Threatening, Hospitalization)
  Sender: FDA-Public Use
  Company Number: K200400916

PATIENT
  Age: 35 Year
  Sex: Male

DRUGS (10)
  1. SEPTRA [Suspect]
     Dates: end: 20040322
  2. TRIZIVIR [Suspect]
     Indication: HIV INFECTION
     Dosage: SEE IMAGE
     Route: 048
     Dates: start: 20030807, end: 20040322
  3. TRIZIVIR [Suspect]
     Indication: HIV INFECTION
     Dosage: SEE IMAGE
     Route: 048
     Dates: start: 20040408, end: 20040409
  4. MORPHINE [Concomitant]
  5. FUROSEMIDE [Concomitant]
  6. RIFAMPICIN [Concomitant]
  7. ETHAMBUTOL HCL [Concomitant]
  8. PYRAZINAMIDE [Concomitant]
  9. ISONIAZID [Concomitant]
  10. POTASSIUM CHLORIDE [Concomitant]

REACTIONS (10)
  - CONDITION AGGRAVATED [None]
  - HYPOTENSION [None]
  - JAUNDICE [None]
  - KAPOSI'S SARCOMA [None]
  - LOWER RESPIRATORY TRACT INFECTION [None]
  - MALAISE [None]
  - PYREXIA [None]
  - RIGHT VENTRICULAR FAILURE [None]
  - THROMBOCYTOPENIA [None]
  - TUBERCULOSIS [None]
